FAERS Safety Report 22595944 (Version 1)
Quarter: 2023Q2

REPORT INFORMATION
  Report Type: Spontaneous
  Country: US (occurrence: US)
  Receive Date: 20230613
  Receipt Date: 20230613
  Transmission Date: 20230722
  Serious: No
  Sender: FDA-Public Use
  Company Number: US-RIGEL Pharmaceuticals, INC-2023FOS000218

PATIENT
  Sex: Male

DRUGS (1)
  1. TAVALISSE [Suspect]
     Active Substance: FOSTAMATINIB
     Indication: Immune thrombocytopenia
     Dosage: 150 MILLIGRAM, BID
     Route: 048
     Dates: start: 20220820

REACTIONS (2)
  - Taste disorder [Unknown]
  - Nausea [Unknown]
